FAERS Safety Report 5984911-1 (Version None)
Quarter: 2008Q4

REPORT INFORMATION
  Report Type: 
  Country: None (occurrence: None)
  Receive Date: 20081202
  Receipt Date: 20081119
  Transmission Date: 20090506
  Serious: Yes (Life-Threatening, Hospitalization)
  Sender: FDA-Public Use
  Company Number: 2008AP003155

PATIENT
  Age: 86 Year
  Sex: Female

DRUGS (21)
  1. ALENDRONATE SODIUM [Suspect]
     Indication: OSTEOPOROSIS PROPHYLAXIS
     Dosage: 70 MG; QW; PO
     Route: 048
     Dates: start: 20081019, end: 20081029
  2. CALCIUM CARBONATE (CALCIUM CARBONATE) [Concomitant]
  3. COLECALCIFEROL (COLECALCIFEROL) [Concomitant]
  4. ACETYLSALICYLIC ACID SRT [Concomitant]
  5. CLOPIDOGREL BISULFATE [Suspect]
     Indication: ACUTE MYOCARDIAL INFARCTION
     Dosage: 75 MG; QD; PO
     Route: 048
     Dates: start: 20081009, end: 20081029
  6. DALTEPARIN SODIUM [Suspect]
     Indication: ACUTE MYOCARDIAL INFARCTION
     Dosage: 7500 IU; SC; BID
     Route: 058
     Dates: start: 20081009, end: 20081011
  7. BISOPROLOL FUMARATE (BISOPROLOL FUMRATE) [Concomitant]
  8. CODEINE PHOSPHATE (CODEINE PHOSPHATE) [Concomitant]
  9. ACETAMINOPHEN [Concomitant]
  10. DIGOXIN [Concomitant]
  11. FUROSEMIDE [Concomitant]
  12. FUSIDIC ACID [Concomitant]
  13. HYDROCORTISONE SODIUM SUCCINATE [Concomitant]
  14. LACTULOSE (LUCTULOSE) [Concomitant]
  15. METOCLOPRAMIDE [Concomitant]
  16. ACETAMINOPHEN [Concomitant]
  17. PREDNISOLONE [Concomitant]
  18. RANITIDINE [Concomitant]
  19. SIMVASTATIN [Concomitant]
  20. SPIRONOLACTONE [Concomitant]
  21. ALENDRONATE SODIUM [Concomitant]

REACTIONS (1)
  - GASTROINTESTINAL HAEMORRHAGE [None]
